FAERS Safety Report 15729458 (Version 2)
Quarter: 2018Q4

REPORT INFORMATION
  Report Type: Spontaneous
  Country: CA (occurrence: CA)
  Receive Date: 20181217
  Receipt Date: 20181217
  Transmission Date: 20190205
  Serious: Yes (Hospitalization, Other)
  Sender: FDA-Public Use
  Company Number: CA-ENDO PHARMACEUTICALS INC-2018-043338

PATIENT
  Age: 61 Year
  Sex: Female

DRUGS (3)
  1. IMMUNOGLOBULINS [Concomitant]
     Active Substance: IMMUNE GLOBULIN NOS
     Indication: PRODUCT USED FOR UNKNOWN INDICATION
     Dosage: UNK UNKNOWN, MONTHLY
     Route: 042
  2. ACICLOVIR [Suspect]
     Active Substance: ACYCLOVIR
     Indication: PRODUCT USED FOR UNKNOWN INDICATION
     Dosage: UNK UNKNOWN, UNKNOWN
     Route: 065
  3. MYCOPHENOLATE MOFETIL. [Suspect]
     Active Substance: MYCOPHENOLATE MOFETIL
     Indication: IMMUNE-MEDIATED NECROTISING MYOPATHY
     Dosage: 1 G, BID
     Route: 065

REACTIONS (3)
  - Off label use [Unknown]
  - Status epilepticus [Recovered/Resolved]
  - Encephalopathy [Recovered/Resolved]
